FAERS Safety Report 7363592-9 (Version None)
Quarter: 2011Q1

REPORT INFORMATION
  Report Type: 
  Country: None (occurrence: None)
  Receive Date: 20110321
  Receipt Date: 20110315
  Transmission Date: 20110831
  Serious: Yes (Other)
  Sender: FDA-Public Use
  Company Number: SE-PFIZER INC-2011056742

PATIENT
  Age: 44 Year
  Sex: Female

DRUGS (2)
  1. PROVERA [Suspect]
     Indication: ENDOMETRIOSIS
  2. PROVERA [Suspect]
     Indication: OFF LABEL USE

REACTIONS (3)
  - BENIGN FEMALE REPRODUCTIVE TRACT NEOPLASM [None]
  - AGEUSIA [None]
  - ANOSMIA [None]
